FAERS Safety Report 8386799 (Version 3)
Quarter: 2013Q2

REPORT INFORMATION
  Report Type: Report from Study
  Country: DE (occurrence: DE)
  Receive Date: 20120202
  Receipt Date: 20130520
  Transmission Date: 20140414
  Serious: Yes (Hospitalization, Other)
  Sender: FDA-Public Use
  Company Number: DE-ABBOTT-12P-062-0898404-00

PATIENT
  Age: 53 Year
  Sex: Male

DRUGS (3)
  1. HUMIRA [Suspect]
     Route: 058
     Dates: start: 20110906, end: 20120116
  2. HUMIRA [Suspect]
     Route: 058
     Dates: start: 201205, end: 20130507
  3. BUDESONID [Concomitant]
     Indication: CROHN^S DISEASE

REACTIONS (2)
  - Colon cancer [Recovered/Resolved]
  - Recurrent cancer [Not Recovered/Not Resolved]
